FAERS Safety Report 7674504-2 (Version None)
Quarter: 2011Q3

REPORT INFORMATION
  Report Type: 
  Country: None (occurrence: None)
  Receive Date: 20110810
  Receipt Date: 20110727
  Transmission Date: 20111222
  Serious: Yes (Hospitalization)
  Sender: FDA-Public Use
  Company Number: PHHY2011US52137

PATIENT
  Sex: Female

DRUGS (3)
  1. LOPRESSOR [Suspect]
     Dosage: 100 MG, UNK
  2. TAMBOCOR [Concomitant]
  3. LOPRESSOR [Suspect]
     Indication: HYPERTENSION
     Dosage: 50 MG, TID

REACTIONS (4)
  - ATRIAL FIBRILLATION [None]
  - PRURITUS [None]
  - HEART RATE IRREGULAR [None]
  - POLLAKIURIA [None]
